FAERS Safety Report 20363137 (Version 2)
Quarter: 2022Q1

REPORT INFORMATION
  Report Type: Report from Study
  Country: PK (occurrence: PK)
  Receive Date: 20220121
  Receipt Date: 20220131
  Transmission Date: 20220424
  Serious: Yes (Death)
  Sender: FDA-Public Use
  Company Number: PK-NOVARTISPH-NVSC2022PK013076

PATIENT
  Sex: Female
  Weight: 55 kg

DRUGS (1)
  1. GLIVEC [Suspect]
     Active Substance: IMATINIB MESYLATE
     Indication: Chronic myeloid leukaemia
     Dosage: 2 DOSAGE FORM, BID (100 MG)
     Route: 048
     Dates: start: 20201118

REACTIONS (1)
  - Cardio-respiratory arrest [Fatal]
